FAERS Safety Report 20101965 (Version 1)
Quarter: 2021Q4

REPORT INFORMATION
  Report Type: Spontaneous
  Country: US (occurrence: US)
  Receive Date: 20211123
  Receipt Date: 20211123
  Transmission Date: 20220304
  Serious: No
  Sender: FDA-Public Use
  Company Number: US-PFIZER INC-202101118142

PATIENT
  Age: 39 Year
  Sex: Female

DRUGS (5)
  1. IBRANCE [Suspect]
     Active Substance: PALBOCICLIB
     Dosage: 125 MG, CYCLIC (21 DAYS ON, 7 DAYS OFF)
     Route: 048
     Dates: start: 20210509
  2. GARLIC [Concomitant]
     Active Substance: GARLIC
  3. HERBALS [Concomitant]
     Active Substance: HERBALS
  4. ZOLADEX [Concomitant]
     Active Substance: GOSERELIN ACETATE
  5. LETROZOLE [Concomitant]
     Active Substance: LETROZOLE

REACTIONS (2)
  - Stomatitis [Unknown]
  - Rash [Unknown]

NARRATIVE: CASE EVENT DATE: 20210101
